FAERS Safety Report 8021725-5 (Version None)
Quarter: 2012Q1

REPORT INFORMATION
  Report Type: 
  Country: None (occurrence: None)
  Receive Date: 20120104
  Receipt Date: 20111229
  Transmission Date: 20120608
  Serious: Yes (Hospitalization)
  Sender: FDA-Public Use
  Company Number: FR-B.I. PHARMACEUTICALS,INC./RIDGEFIELD-2011-FF-01238FF

PATIENT
  Sex: Male

DRUGS (17)
  1. ROCEPHIN [Suspect]
     Indication: BRONCHOPNEUMONIA
     Route: 042
     Dates: start: 20111112, end: 20111125
  2. CORVASAL [Concomitant]
  3. ATROVENT [Suspect]
     Route: 048
     Dates: start: 20111110, end: 20111118
  4. FORLAX [Suspect]
     Route: 048
     Dates: start: 20111110, end: 20111118
  5. SIMVASTATIN [Concomitant]
  6. FLUTICASONE PROPIONATE [Concomitant]
  7. AUGMENTIN '125' [Suspect]
     Indication: BRONCHOPNEUMONIA
     Route: 048
     Dates: start: 20111117
  8. ROVAMYCINE [Suspect]
     Indication: BRONCHOPNEUMONIA
     Route: 042
     Dates: start: 20111112, end: 20111117
  9. PLAVIX [Concomitant]
  10. SEREVENT [Concomitant]
  11. JANUVIA [Concomitant]
  12. TERBUTALINE ARROW [Suspect]
     Route: 048
     Dates: start: 20111110, end: 20111118
  13. IRBESARTAN AND HYDROCHLOROTHIAZIDE [Concomitant]
  14. EZETIMIBE [Concomitant]
  15. ASPIRIN [Concomitant]
  16. CALCIPARINE [Suspect]
     Route: 048
     Dates: start: 20111110, end: 20111118
  17. DILTIAZEM HCL [Concomitant]

REACTIONS (5)
  - CONFUSIONAL STATE [None]
  - PYREXIA [None]
  - DYSPNOEA [None]
  - BRONCHOPNEUMONIA [None]
  - MENINGITIS ASEPTIC [None]
